FAERS Safety Report 7325727-3 (Version None)
Quarter: 2011Q1

REPORT INFORMATION
  Report Type: 
  Country: None (occurrence: None)
  Receive Date: 20110302
  Receipt Date: 20110224
  Transmission Date: 20110831
  Serious: Yes (Death)
  Sender: FDA-Public Use
  Company Number: JP-ASTRAZENECA-2011SE11126

PATIENT
  Age: 55 Year
  Sex: Male

DRUGS (11)
  1. RESLIN [Concomitant]
  2. RISPERDAL [Concomitant]
  3. ABILIFY [Concomitant]
  4. UBRETID [Concomitant]
  5. BENZALIN [Concomitant]
  6. HALCION [Concomitant]
  7. HIBERNA [Concomitant]
  8. SEROQUEL [Suspect]
     Indication: SCHIZOPHRENIA
     Dosage: 500-600 MG DAILY
     Route: 048
     Dates: start: 20071201, end: 20101001
  9. HIRNAMIN [Concomitant]
  10. GOODMIN [Concomitant]
  11. BIOFERMIN [Concomitant]

REACTIONS (1)
  - SUDDEN DEATH [None]
